FAERS Safety Report 4734572-4 (Version None)
Quarter: 2005Q3

REPORT INFORMATION
  Report Type: 
  Country: None (occurrence: None)
  Receive Date: 20050729
  Receipt Date: 20050714
  Transmission Date: 20060218
  Serious: Yes (Other)
  Sender: FDA-Public Use
  Company Number: PHEH2005US07521

PATIENT
  Age: 77 Year
  Sex: Female
  Weight: 76.2043 kg

DRUGS (6)
  1. VISUDYNE [Suspect]
     Indication: CHOROIDAL NEOVASCULARISATION
     Dosage: 5.7 ML DAILY IV
     Route: 042
     Dates: start: 20040310, end: 20040310
  2. VISUDYNE [Suspect]
     Indication: MACULAR DEGENERATION
     Dosage: 5.7 ML DAILY IV
     Route: 042
     Dates: start: 20040310, end: 20040310
  3. LISINOPRIL [Concomitant]
  4. LEVOTHYROXINE SODIUM [Concomitant]
  5. LORAZEPAM [Concomitant]
  6. AVAPRO [Concomitant]

REACTIONS (2)
  - BLADDER CANCER [None]
  - CYSTITIS NONINFECTIVE [None]
